FAERS Safety Report 10147183 (Version 1)
Quarter: 2014Q2

REPORT INFORMATION
  Report Type: Spontaneous
  Country: JP (occurrence: JP)
  Receive Date: 20140501
  Receipt Date: 20140501
  Transmission Date: 20141212
  Serious: Yes (Hospitalization, Other)
  Sender: FDA-Public Use
  Company Number: JP-TEVA-478999ISR

PATIENT
  Age: 67 Year
  Sex: Female
  Weight: 54.5 kg

DRUGS (8)
  1. MELDEST CAPSULE 100MG,CAP,100MG [Suspect]
     Indication: DIABETES MELLITUS
     Dosage: 300 MILLIGRAM DAILY;
     Route: 048
     Dates: start: 20140319
  2. CALBLOCK TABLETS [Concomitant]
  3. PRAVASTATIN SODIUM [Concomitant]
  4. ETIZOLAM [Concomitant]
  5. REBAMIPIDE [Concomitant]
  6. BAYASPIRIN 100MG [Concomitant]
  7. EQUA TABLETS 50MG [Concomitant]
  8. GLIMEPIRIDE [Concomitant]

REACTIONS (5)
  - Gingival erosion [Recovering/Resolving]
  - Rash [Recovering/Resolving]
  - Malaise [Unknown]
  - Erythema [Recovering/Resolving]
  - Effusion [Recovering/Resolving]
